FAERS Safety Report 5799581-5 (Version None)
Quarter: 2008Q3

REPORT INFORMATION
  Report Type: 
  Country: None (occurrence: None)
  Receive Date: 20080703
  Receipt Date: 20080619
  Transmission Date: 20090109
  Serious: Yes (Other)
  Sender: FDA-Public Use
  Company Number: PHHY2008ES05251

PATIENT
  Age: 80 Year
  Sex: Female

DRUGS (6)
  1. RIVASTIGMINE TARTRATE [Suspect]
     Indication: DEMENTIA ALZHEIMER'S TYPE
     Dosage: 1.5 MG, Q12H
     Route: 048
     Dates: start: 20080101
  2. RIVASTIGMINE TARTRATE [Suspect]
     Dosage: 3 MG, Q12H
     Route: 048
     Dates: start: 20080301, end: 20080312
  3. FUROSEMIDE [Concomitant]
  4. TRANKIMAZIN [Concomitant]
  5. PANTOPRAZOLE SODIUM [Concomitant]
  6. ENOXAPARIN SODIUM [Concomitant]

REACTIONS (3)
  - ACUTE HEPATIC FAILURE [None]
  - GENERAL PHYSICAL HEALTH DETERIORATION [None]
  - HEPATITIS TOXIC [None]
